FAERS Safety Report 16856552 (Version 1)
Quarter: 2019Q3

REPORT INFORMATION
  Report Type: Spontaneous
  Country: US (occurrence: US)
  Receive Date: 20190926
  Receipt Date: 20190926
  Transmission Date: 20191005
  Serious: No
  Sender: FDA-Public Use
  Company Number: US-009507513-1909USA000304

PATIENT
  Sex: Female

DRUGS (4)
  1. ZOFRAN [Concomitant]
     Active Substance: ONDANSETRON HYDROCHLORIDE
     Dosage: UNK
  2. TEMODAR [Suspect]
     Active Substance: TEMOZOLOMIDE
     Indication: BRAIN NEOPLASM MALIGNANT
     Dosage: 1 CAPSULE BY MOUTH WITH TWO 5 MG CAPSULE (TOTAL 190 MG) DAILY ON DAYS 2 THROUGHT 6 EVERY 6 WEEKS
     Route: 048
     Dates: start: 201907
  3. TEMODAR [Suspect]
     Active Substance: TEMOZOLOMIDE
     Indication: BRAIN NEOPLASM MALIGNANT
     Dosage: 2 CAPSULES BY MOUTH WITH THE 180 MG CAPSULE (TOTAL 190 MG) DAILY ON DAYS 2 THROUGHT 6 EVERY 6 WEEKS
     Route: 048
     Dates: start: 201907
  4. LOMUSTINE. [Concomitant]
     Active Substance: LOMUSTINE
     Dosage: UNK

REACTIONS (1)
  - Adverse event [Unknown]
